FAERS Safety Report 6299568-2 (Version None)
Quarter: 2009Q3

REPORT INFORMATION
  Report Type: 
  Country: None (occurrence: None)
  Receive Date: 20090805
  Receipt Date: 20090805
  Transmission Date: 20100115
  Serious: Yes (Life-Threatening)
  Sender: FDA-Public Use
  Company Number: None

PATIENT
  Age: 23 Year
  Sex: Female
  Weight: 67.1324 kg

DRUGS (1)
  1. NUVARING [Suspect]
     Indication: CONTRACEPTION
     Dosage: .120MG/.015 3 WEEKS VAG
     Route: 067
     Dates: start: 20090706, end: 20090727

REACTIONS (8)
  - DECREASED APPETITE [None]
  - DEPRESSION [None]
  - DYSPAREUNIA [None]
  - DYSPNOEA [None]
  - DYSURIA [None]
  - EYE PRURITUS [None]
  - NAUSEA [None]
  - VULVOVAGINAL PRURITUS [None]
